FAERS Safety Report 5019657-X (Version None)
Quarter: 2006Q2

REPORT INFORMATION
  Report Type: 
  Country: None (occurrence: None)
  Receive Date: 20060601
  Receipt Date: 20060518
  Transmission Date: 20061013
  Serious: Yes (Hospitalization)
  Sender: FDA-Public Use
  Company Number: 2006PV014305

PATIENT
  Age: 44 Year
  Sex: Male

DRUGS (5)
  1. BYETTA [Suspect]
     Indication: DRUG USE FOR UNKNOWN INDICATION
     Dosage: 10 MCG; BID
  2. METFORMIN [Concomitant]
  3. AVANDIA [Concomitant]
  4. STARLIX [Concomitant]
  5. GLIMEPIRIDE [Concomitant]

REACTIONS (1)
  - PANCREATITIS [None]
